FAERS Safety Report 10016077 (Version 1)
Quarter: 2014Q1

REPORT INFORMATION
  Report Type: Spontaneous
  Country: BE (occurrence: BE)
  Receive Date: 20140317
  Receipt Date: 20140317
  Transmission Date: 20141002
  Serious: Yes (Hospitalization)
  Sender: FDA-Public Use
  Company Number: BE-TEVA-468753ISR

PATIENT
  Age: 81 Year
  Sex: Male

DRUGS (8)
  1. VENLAFAXINE [Suspect]
     Dosage: 150 MILLIGRAM DAILY;
     Route: 048
  2. LEVODOPA [Interacting]
     Indication: PARKINSON^S DISEASE
     Dosage: 250 MILLIGRAM DAILY;
     Route: 048
  3. LEVODOPA [Interacting]
     Route: 050
  4. PRAMIPEXOLE [Interacting]
     Indication: PARKINSON^S DISEASE
     Dosage: 2.1 MILLIGRAM DAILY;
     Route: 048
  5. PRAMIPEXOLE [Interacting]
     Route: 050
  6. ESCITALOPRAM [Interacting]
     Dosage: 10 MILLIGRAM DAILY;
     Route: 048
  7. CEFUROXIME [Concomitant]
     Route: 065
  8. METRONIDAZOLE [Concomitant]
     Route: 065

REACTIONS (3)
  - Neuroleptic malignant syndrome [Recovered/Resolved]
  - Withdrawal syndrome [Recovered/Resolved]
  - Food interaction [Recovered/Resolved]
